FAERS Safety Report 6395515-3 (Version None)
Quarter: 2009Q4

REPORT INFORMATION
  Report Type: 
  Country: None (occurrence: None)
  Receive Date: 20091009
  Receipt Date: 20091002
  Transmission Date: 20100525
  Serious: No
  Sender: FDA-Public Use
  Company Number: VE-AVENTIS-200921220GDDC

PATIENT
  Age: 21 Year
  Sex: Female
  Weight: 43 kg

DRUGS (1)
  1. ARAVA [Suspect]
     Route: 048
     Dates: start: 20090501

REACTIONS (2)
  - DRUG EXPOSURE DURING PREGNANCY [None]
  - NO ADVERSE EVENT [None]
